FAERS Safety Report 10243214 (Version 2)
Quarter: 2014Q4

REPORT INFORMATION
  Report Type: Spontaneous
  Country: IT (occurrence: IT)
  Receive Date: 20140618
  Receipt Date: 20141014
  Transmission Date: 20150528
  Serious: Yes (Other)
  Sender: FDA-Public Use
  Company Number: IT-JNJFOC-20140607851

PATIENT
  Age: 62 Year
  Sex: Male

DRUGS (1)
  1. RISPERDAL [Suspect]
     Active Substance: RISPERIDONE
     Indication: PSYCHOTIC DISORDER
     Dosage: 6-7 TABLETS UNTIL THE NIGHT
     Route: 065
     Dates: start: 20140611, end: 20140611

REACTIONS (5)
  - Drug abuse [Unknown]
  - Akathisia [Unknown]
  - Sluggishness [Unknown]
  - Agitation [Unknown]
  - Intentional overdose [Unknown]

NARRATIVE: CASE EVENT DATE: 20140611
